FAERS Safety Report 8232326-8 (Version None)
Quarter: 2012Q1

REPORT INFORMATION
  Report Type: 
  Country: None (occurrence: None)
  Receive Date: 20120323
  Receipt Date: 20120321
  Transmission Date: 20120608
  Serious: Yes (Hospitalization, Congenital Anomaly)
  Sender: FDA-Public Use
  Company Number: US-GLAXOSMITHKLINE-A0909884A

PATIENT
  Sex: Female

DRUGS (1)
  1. PAXIL [Suspect]
     Indication: PRODUCT USED FOR UNKNOWN INDICATION
     Route: 064

REACTIONS (12)
  - AORTIC OCCLUSION [None]
  - CARDIAC VALVE DISEASE [None]
  - ATRIAL SEPTAL DEFECT [None]
  - COARCTATION OF THE AORTA [None]
  - FOETAL EXPOSURE DURING PREGNANCY [None]
  - CARDIOMEGALY [None]
  - PULMONARY HYPERTENSION [None]
  - DEVELOPMENTAL DELAY [None]
  - MITRAL VALVE DISEASE [None]
  - PATENT DUCTUS ARTERIOSUS [None]
  - VENTRICULAR SEPTAL DEFECT [None]
  - CARDIAC FAILURE CONGESTIVE [None]
